FAERS Safety Report 17641690 (Version 2)
Quarter: 2020Q2

REPORT INFORMATION
  Report Type: Report from Study
  Country: ES (occurrence: ES)
  Receive Date: 20200407
  Receipt Date: 20200519
  Transmission Date: 20200713
  Serious: Yes (Hospitalization, Other)
  Sender: FDA-Public Use
  Company Number: ES-SEATTLE GENETICS-2020SGN01624

PATIENT
  Age: 22 Year
  Sex: Male
  Weight: 57.4 kg

DRUGS (7)
  1. CYCLOPHOSPHAMIDE. [Suspect]
     Active Substance: CYCLOPHOSPHAMIDE
     Indication: HODGKIN^S DISEASE
     Dosage: 2050 MILLIGRAM
     Route: 065
     Dates: start: 20191029
  2. ETOPOSIDE. [Suspect]
     Active Substance: ETOPOSIDE
     Indication: HODGKIN^S DISEASE
     Dosage: 257 MILLIGRAM
     Route: 065
     Dates: start: 20191029
  3. BRENTUXIMAB VEDOTIN [Suspect]
     Active Substance: BRENTUXIMAB VEDOTIN
     Indication: HODGKIN^S DISEASE
     Dosage: 101 MILLIGRAM
     Route: 065
     Dates: start: 20190926
  4. VINBLASTINE [Suspect]
     Active Substance: VINBLASTINE
     Indication: HODGKIN^S DISEASE
     Dosage: 10 MILLIGRAM
     Route: 065
     Dates: start: 20190926
  5. DOXORUBICIN [Suspect]
     Active Substance: DOXORUBICIN
     Indication: HODGKIN^S DISEASE
     Dosage: 34.2 MILLIGRAM
     Route: 065
     Dates: start: 20190926
  6. DACARBAZINE. [Suspect]
     Active Substance: DACARBAZINE
     Indication: HODGKIN^S DISEASE
     Dosage: 428 MILLIGRAM
     Route: 065
     Dates: start: 20190926
  7. SGN WHO DEXAMETHASONE [Suspect]
     Active Substance: DEXAMETHASONE
     Indication: HODGKIN^S DISEASE
     Dosage: 20 MILLIGRAM
     Route: 065
     Dates: start: 20190926

REACTIONS (1)
  - COVID-19 [Recovered/Resolved]

NARRATIVE: CASE EVENT DATE: 20200317
